FAERS Safety Report 7454318-9 (Version None)
Quarter: 2011Q2

REPORT INFORMATION
  Report Type: 
  Country: None (occurrence: None)
  Receive Date: 20110503
  Receipt Date: 20110420
  Transmission Date: 20111010
  Serious: Yes (Other)
  Sender: FDA-Public Use
  Company Number: US-BAYER-2011-037194

PATIENT
  Age: 43 Year
  Sex: Female
  Weight: 66 kg

DRUGS (3)
  1. MAXALT [Concomitant]
     Indication: MIGRAINE
     Dosage: UNK UNK, PRN
  2. YAZ [Suspect]
     Indication: MIGRAINE
  3. YAZ [Suspect]
     Indication: CONTRACEPTION
     Dosage: UNK
     Dates: start: 20071201, end: 20081201

REACTIONS (1)
  - THROMBOPHLEBITIS SUPERFICIAL [None]
